FAERS Safety Report 20947203 (Version 1)
Quarter: 2022Q2

REPORT INFORMATION
  Report Type: Spontaneous
  Country: US (occurrence: US)
  Receive Date: 20220610
  Receipt Date: 20220610
  Transmission Date: 20220720
  Serious: No
  Sender: FDA-Public Use
  Company Number: US-BRISTOL-MYERS SQUIBB COMPANY-2022-054534

PATIENT
  Age: 68 Year
  Sex: Male
  Weight: 83 kg

DRUGS (1)
  1. REVLIMID [Suspect]
     Active Substance: LENALIDOMIDE
     Indication: Plasma cell myeloma
     Dosage: FREQ: DAILY 21ON/7OFF
     Route: 048

REACTIONS (5)
  - Headache [Unknown]
  - Fatigue [Unknown]
  - Nausea [Unknown]
  - Blood calcium decreased [Unknown]
  - Blood potassium decreased [Unknown]
